FAERS Safety Report 21371016 (Version 4)
Quarter: 2024Q4

REPORT INFORMATION
  Report Type: Report from Study
  Country: CA (occurrence: CA)
  Receive Date: 20220923
  Receipt Date: 20241220
  Transmission Date: 20250115
  Serious: Yes (Other)
  Sender: CSL BEHRING
  Company Number: CA-BEH-2022149846

PATIENT
  Age: 73 Year
  Sex: Female
  Weight: 121 kg

DRUGS (23)
  1. HAEGARDA [Suspect]
     Active Substance: HUMAN C1-ESTERASE INHIBITOR
     Indication: Hereditary angioedema
     Dosage: 7000 INTERNATIONAL UNIT, EVERY 3 DAYS AND TIW
     Route: 058
     Dates: start: 20220906
  2. HAEGARDA [Suspect]
     Active Substance: HUMAN C1-ESTERASE INHIBITOR
     Indication: Prophylaxis
     Dosage: 7000 INTERNATIONAL UNIT, 3 EVERY 1 WEEK
     Route: 058
  3. LASIX [Concomitant]
     Active Substance: FUROSEMIDE
  4. PINDOLOL [Concomitant]
     Active Substance: PINDOLOL
  5. CANDESARTAN [Concomitant]
     Active Substance: CANDESARTAN
  6. METFORMIN [Concomitant]
     Active Substance: METFORMIN HYDROCHLORIDE
  7. POTASSIUM [Concomitant]
     Active Substance: POTASSIUM
  8. LEVOTHYROXINE [Concomitant]
     Active Substance: LEVOTHYROXINE
  9. MONTELUKAST [Concomitant]
     Active Substance: MONTELUKAST SODIUM
  10. IRON [Concomitant]
     Active Substance: IRON
  11. PANTOPRAZOLE SODIUM [Concomitant]
     Active Substance: PANTOPRAZOLE SODIUM
  12. ALVESCO [Concomitant]
     Active Substance: CICLESONIDE
  13. DIGESTIVE ENZYMES [ALPHA-D-GALACTOSIDASE;AMYLASE;BROMELAINS;CELLULASE; [Concomitant]
  14. ZOPICLONE [Concomitant]
     Active Substance: ZOPICLONE
  15. B50 [Concomitant]
  16. FISH OIL [Concomitant]
     Active Substance: FISH OIL
  17. CYANOCOBALAMIN [Concomitant]
     Active Substance: CYANOCOBALAMIN
  18. CALCIUM [Concomitant]
     Active Substance: CALCIUM
  19. VITAMIN D NOS [Concomitant]
     Active Substance: CHOLECALCIFEROL\ERGOCALCIFEROL
  20. MAGNESIUM [Concomitant]
     Active Substance: MAGNESIUM
  21. VITAMINS [Concomitant]
     Active Substance: VITAMINS
  22. CYANOCOBALAMIN [Concomitant]
     Active Substance: CYANOCOBALAMIN
  23. ERGOCALCIFEROL [Concomitant]
     Active Substance: ERGOCALCIFEROL

REACTIONS (3)
  - Hereditary angioedema [Not Recovered/Not Resolved]
  - Dyspnoea [Not Recovered/Not Resolved]
  - Hereditary angioedema [Not Recovered/Not Resolved]

NARRATIVE: CASE EVENT DATE: 20220913
